FAERS Safety Report 8387003-X (Version None)
Quarter: 2012Q2

REPORT INFORMATION
  Report Type: 
  Country: None (occurrence: None)
  Receive Date: 20120525
  Receipt Date: 20120522
  Transmission Date: 20120825
  Serious: Yes (Death)
  Sender: FDA-Public Use
  Company Number: US-PFIZER INC-2011002692

PATIENT
  Age: 65 Year
  Sex: Male

DRUGS (8)
  1. MODAFANIL [Suspect]
  2. VENLAFAXINE HCL [Suspect]
     Route: 048
  3. WARFARIN SODIUM [Suspect]
  4. PROPRANOLOL [Suspect]
  5. ACETAMINOPHEN [Suspect]
  6. DOXEPIN HCL [Suspect]
     Route: 048
  7. LAMOTRGINE [Suspect]
  8. ALPRAZOLAM [Suspect]
     Route: 048

REACTIONS (3)
  - COMPLETED SUICIDE [None]
  - CARDIAC ARREST [None]
  - RESPIRATORY ARREST [None]
